FAERS Safety Report 9315878 (Version 1)
Quarter: 2013Q2

REPORT INFORMATION
  Report Type: Spontaneous
  Country: DZ (occurrence: DZ)
  Receive Date: 20130530
  Receipt Date: 20130530
  Transmission Date: 20140414
  Serious: Yes (Hospitalization)
  Sender: FDA-Public Use
  Company Number: DZ-ROCHE-1228268

PATIENT
  Age: 70 Year
  Sex: Female

DRUGS (2)
  1. HERCEPTIN [Suspect]
     Indication: BREAST CANCER
     Route: 042
     Dates: start: 2012
  2. TAXOL [Suspect]
     Indication: BREAST CANCER
     Route: 065

REACTIONS (4)
  - Ejection fraction decreased [Unknown]
  - Cardiac failure [Unknown]
  - Ascites [Unknown]
  - Disease progression [Unknown]
